FAERS Safety Report 7468107-2 (Version None)
Quarter: 2011Q2

REPORT INFORMATION
  Report Type: 
  Country: None (occurrence: None)
  Receive Date: 20110509
  Receipt Date: 20110324
  Transmission Date: 20111010
  Serious: No
  Sender: FDA-Public Use
  Company Number: US-ALEXION-A201100416

PATIENT

DRUGS (3)
  1. SOLIRIS [Suspect]
     Indication: PAROXYSMAL NOCTURNAL HAEMOGLOBINURIA
     Dosage: UNK
     Route: 042
     Dates: start: 20100201
  2. SOLIRIS [Suspect]
     Dosage: 1200 MG, Q2W
     Route: 042
     Dates: start: 20100501, end: 20101201
  3. SOLIRIS [Suspect]
     Dosage: 1500 MG, Q2W
     Route: 042
     Dates: start: 20101201

REACTIONS (2)
  - FATIGUE [None]
  - BLOOD LACTATE DEHYDROGENASE INCREASED [None]
